FAERS Safety Report 4695846-9 (Version None)
Quarter: 2005Q2

REPORT INFORMATION
  Report Type: 
  Country: None (occurrence: None)
  Receive Date: 20050607
  Receipt Date: 20050304
  Transmission Date: 20051028
  Serious: Yes (Disabling)
  Sender: FDA-Public Use
  Company Number: A03200500658

PATIENT
  Sex: Female

DRUGS (1)
  1. PLAQUENIL [Suspect]
     Dosage: 200-400 MG/DAY - ORAL
     Route: 048
     Dates: start: 19960101, end: 20040101

REACTIONS (1)
  - PHOTOPSIA [None]
